FAERS Safety Report 5338091-6 (Version None)
Quarter: 2007Q2

REPORT INFORMATION
  Report Type: 
  Country: None (occurrence: None)
  Receive Date: 20070327
  Receipt Date: 20061220
  Transmission Date: 20071010
  Serious: Yes (Other)
  Sender: FDA-Public Use
  Company Number: 234202

PATIENT
  Sex: Female

DRUGS (3)
  1. AVASTIN [Suspect]
     Indication: BREAST CANCER METASTATIC
  2. CAPECITABINE [Concomitant]
  3. ABRAXANE [Concomitant]

REACTIONS (3)
  - ASCITES [None]
  - DISEASE PROGRESSION [None]
  - PLEURAL EFFUSION [None]
